FAERS Safety Report 14853515 (Version 2)
Quarter: 2018Q4

REPORT INFORMATION
  Report Type: Spontaneous
  Country: FR (occurrence: FR)
  Receive Date: 20180507
  Receipt Date: 20181129
  Transmission Date: 20190204
  Serious: Yes (Hospitalization, Other)
  Sender: FDA-Public Use
  Company Number: FR-PFIZER INC-2018184598

PATIENT
  Age: 89 Year
  Sex: Female
  Weight: 51 kg

DRUGS (2)
  1. CORDARONE [Suspect]
     Active Substance: AMIODARONE HYDROCHLORIDE
     Indication: ARRHYTHMIA
     Dosage: 200 MG, DAILY
     Route: 048
     Dates: end: 20180325
  2. DIGOXINE NATIVELLE [Suspect]
     Active Substance: DIGOXIN
     Indication: ARRHYTHMIA
     Dosage: 0.25 MG, DAILY
     Route: 048
     Dates: end: 20180325

REACTIONS (8)
  - Visual acuity reduced [Recovered/Resolved]
  - Agitation [Recovered/Resolved]
  - Atrial fibrillation [Recovered/Resolved]
  - Tachyarrhythmia [Recovered/Resolved]
  - Confusional state [Recovered/Resolved]
  - Abnormal behaviour [Recovered/Resolved]
  - Bradyarrhythmia [Recovered/Resolved]
  - Cardioactive drug level increased [Recovered/Resolved]

NARRATIVE: CASE EVENT DATE: 20180323
